FAERS Safety Report 23551169 (Version 1)
Quarter: 2024Q1

REPORT INFORMATION
  Report Type: Other
  Country: IE (occurrence: IE)
  Receive Date: 20240222
  Receipt Date: 20240222
  Transmission Date: 20240409
  Serious: Yes (Hospitalization)
  Sender: FDA-Public Use
  Company Number: None

PATIENT
  Age: 64 Year
  Sex: Male

DRUGS (2)
  1. MEROPENEM [Suspect]
     Active Substance: MEROPENEM
     Indication: Sepsis
     Dosage: 2000 MG AT AN UNSPECIFIED FREQUENCY; DOSAGE FORM: POWDER FOR SOLUTION FOR INJECTION
     Route: 042
     Dates: start: 20240112, end: 20240123
  2. DAPTOMYCIN [Suspect]
     Active Substance: DAPTOMYCIN
     Indication: Sepsis
     Dosage: 700 MG AT AN UNSPECIFIED FREQUENCY
     Route: 042
     Dates: start: 20240113, end: 20240123

REACTIONS (1)
  - Malaise [Unknown]

NARRATIVE: CASE EVENT DATE: 20240123
